FAERS Safety Report 12009282 (Version 1)
Quarter: 2016Q1

REPORT INFORMATION
  Report Type: Spontaneous
  Country: US (occurrence: None)
  Receive Date: 20160204
  Receipt Date: 20160204
  Transmission Date: 20160526
  Serious: Yes (Life-Threatening)
  Sender: FDA-Public Use
  Company Number: None

PATIENT
  Age: 67 Year
  Sex: Female

DRUGS (1)
  1. PROLIA [Suspect]
     Active Substance: DENOSUMAB
     Route: 058
     Dates: start: 20151210, end: 20151210

REACTIONS (17)
  - Groin pain [None]
  - Blood sodium decreased [None]
  - Abdominal pain [None]
  - Pain in jaw [None]
  - Myalgia [None]
  - Muscle spasms [None]
  - Blood calcium decreased [None]
  - Throat tightness [None]
  - Pain [None]
  - Pain in extremity [None]
  - Arthralgia [None]
  - Slow speech [None]
  - Hypotension [None]
  - Back pain [None]
  - Dysstasia [None]
  - Abasia [None]
  - Dyspnoea [None]

NARRATIVE: CASE EVENT DATE: 20151210
